FAERS Safety Report 11203652 (Version 2)
Quarter: 2015Q2

REPORT INFORMATION
  Report Type: Spontaneous
  Country: US (occurrence: US)
  Receive Date: 20150619
  Receipt Date: 20150625
  Transmission Date: 20150821
  Serious: Yes (Hospitalization)
  Sender: FDA-Public Use
  Company Number: US-JNJFOC-20150614263

PATIENT
  Age: 16 Year
  Sex: Male

DRUGS (2)
  1. 6- MERCAPTOPURINE [Suspect]
     Active Substance: MERCAPTOPURINE ANHYDROUS
     Indication: CROHN^S DISEASE
     Route: 065
  2. INFLIXIMAB, RECOMBINANT [Suspect]
     Active Substance: INFLIXIMAB
     Indication: CROHN^S DISEASE
     Route: 042

REACTIONS (1)
  - Nocardiosis [Recovered/Resolved]
